FAERS Safety Report 10034080 (Version 1)
Quarter: 2014Q1

REPORT INFORMATION
  Report Type: Spontaneous
  Country: GB (occurrence: None)
  Receive Date: 20140320
  Receipt Date: 20140320
  Transmission Date: 20141002
  Serious: Yes (Other)
  Sender: FDA-Public Use
  Company Number: AUR-APL-2014-02713

PATIENT
  Age: 15 Year
  Sex: Male

DRUGS (1)
  1. FLUOXETIN [Suspect]
     Indication: DEPRESSION
     Route: 048
     Dates: start: 20140207, end: 20140214

REACTIONS (3)
  - Serotonin syndrome [None]
  - Anxiety [None]
  - Emotional distress [None]
